FAERS Safety Report 21434815 (Version 1)
Quarter: 2022Q4

REPORT INFORMATION
  Report Type: Spontaneous
  Country: US (occurrence: US)
  Receive Date: 20221010
  Receipt Date: 20221010
  Transmission Date: 20230113
  Serious: Yes (Hospitalization, Disabling, Other)
  Sender: FDA-Public Use
  Company Number: US-ORGANON-1205USA04993

PATIENT
  Sex: Female
  Weight: 86.168 kg

DRUGS (13)
  1. FOSAMAX [Suspect]
     Active Substance: ALENDRONATE SODIUM
     Indication: Osteopenia
     Dosage: 70 MG, QW
     Route: 048
     Dates: start: 200201, end: 201012
  2. CALCIUM CITRATE [Concomitant]
     Active Substance: CALCIUM CITRATE
     Indication: Product used for unknown indication
     Dosage: 600 MILLIGRAM, QD
     Route: 065
     Dates: start: 1995
  3. VITAMINS NOS [Concomitant]
     Active Substance: VITAMINS
     Indication: Product used for unknown indication
     Dosage: QD
     Route: 048
     Dates: start: 1995
  4. PYRIDOXINE [Concomitant]
     Active Substance: PYRIDOXINE
     Indication: Product used for unknown indication
     Dosage: 100-200 MG QD
     Route: 065
     Dates: start: 1995
  5. CYANOCOBALAMIN [Concomitant]
     Active Substance: CYANOCOBALAMIN
     Indication: Product used for unknown indication
     Dosage: 250-1000 MCG QD
     Route: 065
     Dates: start: 1995
  6. OMEGA-3-ACID ETHYL ESTERS [Concomitant]
     Active Substance: OMEGA-3-ACID ETHYL ESTERS
     Indication: Product used for unknown indication
     Dosage: 1000-2000 MG QD
     Route: 048
  7. LEFLUNOMIDE [Concomitant]
     Active Substance: LEFLUNOMIDE
     Indication: Rheumatoid arthritis
     Dosage: 10 MG, QD
     Route: 065
  8. MAXZIDE [Concomitant]
     Active Substance: HYDROCHLOROTHIAZIDE\TRIAMTERENE
     Indication: Hypertension
     Dosage: 37.5/25 MG QD
     Route: 065
  9. HYDRALAZINE HYDROCHLORIDE [Concomitant]
     Active Substance: HYDRALAZINE HYDROCHLORIDE
     Indication: Hypertension
     Dosage: 37.5/25 MG QD
     Route: 065
  10. ARAVA [Concomitant]
     Active Substance: LEFLUNOMIDE
     Indication: Rheumatoid arthritis
     Dosage: 10 MG, QD
     Route: 065
  11. PLAQUENIL [Concomitant]
     Active Substance: HYDROXYCHLOROQUINE SULFATE
     Indication: Rheumatoid arthritis
     Dosage: UNK
     Route: 065
  12. METHOTREXATE [Concomitant]
     Active Substance: METHOTREXATE
     Indication: Product used for unknown indication
     Dosage: UNK
     Route: 065
  13. AZULFIDINE [Concomitant]
     Active Substance: SULFASALAZINE
     Indication: Product used for unknown indication
     Dosage: UNK
     Route: 065

REACTIONS (68)
  - Femur fracture [Not Recovered/Not Resolved]
  - Chest pain [Not Recovered/Not Resolved]
  - Femur fracture [Not Recovered/Not Resolved]
  - Osteoporosis [Not Recovered/Not Resolved]
  - Stress fracture [Not Recovered/Not Resolved]
  - Foot deformity [Unknown]
  - Endometrial adenocarcinoma [Unknown]
  - Cholecystectomy [Unknown]
  - Tarsal tunnel decompression [Unknown]
  - Renal failure [Unknown]
  - Foot operation [Unknown]
  - Dyspepsia [Not Recovered/Not Resolved]
  - Back pain [Not Recovered/Not Resolved]
  - Osteonecrosis of jaw [Not Recovered/Not Resolved]
  - Musculoskeletal pain [Not Recovered/Not Resolved]
  - Salpingo-oophorectomy bilateral [Unknown]
  - Hysterosalpingo-oophorectomy [Unknown]
  - Hypokalaemia [Unknown]
  - Neuropathy peripheral [Unknown]
  - Impaired healing [Unknown]
  - Visual field defect [Unknown]
  - Anxiety [Unknown]
  - Hyperhidrosis [Unknown]
  - Melanocytic naevus [Unknown]
  - Seborrhoeic keratosis [Unknown]
  - Hyperkeratosis [Unknown]
  - Bladder disorder [Unknown]
  - Hyperlipidaemia [Unknown]
  - Patellofemoral pain syndrome [Unknown]
  - Hyperkeratosis [Unknown]
  - Eczema [Unknown]
  - Renal cyst [Unknown]
  - Synovial disorder [Unknown]
  - Oropharyngeal pain [Unknown]
  - Herpes simplex [Unknown]
  - Carpal tunnel syndrome [Unknown]
  - Restless legs syndrome [Unknown]
  - Nasal congestion [Unknown]
  - Fungal infection [Unknown]
  - Peripheral sensory neuropathy [Unknown]
  - Tarsal tunnel syndrome [Unknown]
  - Foot fracture [Unknown]
  - Spinal osteoarthritis [Unknown]
  - Haematuria [Unknown]
  - Laboratory test abnormal [Unknown]
  - Urinary tract infection [Unknown]
  - Bronchitis [Unknown]
  - Tachycardia [Unknown]
  - Pharyngitis [Unknown]
  - Acute sinusitis [Unknown]
  - Cough [Unknown]
  - Endometriosis [Unknown]
  - Peripheral sensory neuropathy [Unknown]
  - Pollakiuria [Unknown]
  - Skin lesion [Unknown]
  - Skin lesion [Unknown]
  - Spinal osteoarthritis [Unknown]
  - Depression [Unknown]
  - Sinus disorder [Unknown]
  - Eye pain [Unknown]
  - Cough [Unknown]
  - Arthralgia [Unknown]
  - Gastrooesophageal reflux disease [Unknown]
  - Oedema peripheral [Unknown]
  - Diarrhoea [Unknown]
  - Headache [Unknown]
  - Drug ineffective [Unknown]
  - Foot fracture [Unknown]

NARRATIVE: CASE EVENT DATE: 20020501
